FAERS Safety Report 20152373 (Version 1)
Quarter: 2021Q4

REPORT INFORMATION
  Report Type: Spontaneous
  Country: US (occurrence: None)
  Receive Date: 20211205
  Receipt Date: 20211205
  Transmission Date: 20220303
  Serious: Yes (Hospitalization)
  Sender: FDA-Public Use
  Company Number: None

PATIENT
  Age: 72 Year
  Sex: Male

DRUGS (19)
  1. CAPECITABINE [Suspect]
     Active Substance: CAPECITABINE
     Indication: Prostate cancer
     Dosage: FREQUENCY : TWICE A DAY;?
     Route: 048
  2. AMOXICILLIN [Concomitant]
     Active Substance: AMOXICILLIN
  3. ASPIRIN [Concomitant]
     Active Substance: ASPIRIN
  4. VITAMIN B12 [Concomitant]
     Active Substance: CYANOCOBALAMIN
  5. BICALUTAMIDE [Concomitant]
     Active Substance: BICALUTAMIDE
  6. CHOLAREST [Concomitant]
  7. CLONIDINE [Concomitant]
     Active Substance: CLONIDINE
  8. COENZYME Q10 [Concomitant]
     Active Substance: DIETARY SUPPLEMENT\UBIDECARENONE
  9. DILTIAZEM [Concomitant]
     Active Substance: DILTIAZEM
  10. DOCETAXEL [Concomitant]
     Active Substance: DOCETAXEL
  11. DOXYCYCLINE [Concomitant]
     Active Substance: DOXYCYCLINE
  12. GABAPENTIN [Concomitant]
     Active Substance: GABAPENTIN
  13. NORCO [Concomitant]
     Active Substance: ACETAMINOPHEN\HYDROCODONE BITARTRATE
  14. LORAZEPAM [Concomitant]
     Active Substance: LORAZEPAM
  15. LUPRON [Concomitant]
     Active Substance: LEUPROLIDE ACETATE
  16. PEG 3350 [Concomitant]
     Active Substance: POLYETHYLENE GLYCOL 3350
  17. TYLENOL [Concomitant]
     Active Substance: ACETAMINOPHEN
  18. ZOFRAN [Concomitant]
     Active Substance: ONDANSETRON HYDROCHLORIDE
  19. ZOLOFT [Concomitant]
     Active Substance: SERTRALINE HYDROCHLORIDE

REACTIONS (5)
  - Urinary tract infection [None]
  - Fall [None]
  - Gait inability [None]
  - Oral mucosal blistering [None]
  - Blister [None]

NARRATIVE: CASE EVENT DATE: 20211204
